FAERS Safety Report 19576377 (Version 1)
Quarter: 2021Q3

REPORT INFORMATION
  Report Type: Spontaneous
  Country: US (occurrence: US)
  Receive Date: 20210717
  Receipt Date: 20210717
  Transmission Date: 20211014
  Serious: No
  Sender: FDA-Public Use
  Company Number: None

PATIENT
  Age: 68 Year
  Sex: Female

DRUGS (1)
  1. HUMIRA [Suspect]
     Active Substance: ADALIMUMAB
     Indication: PSORIATIC ARTHROPATHY
     Route: 058
     Dates: start: 20210326, end: 202107

REACTIONS (5)
  - Dizziness [None]
  - Pruritus [None]
  - Hot flush [None]
  - Abdominal pain [None]
  - Palpitations [None]

NARRATIVE: CASE EVENT DATE: 202104
